FAERS Safety Report 7381653-5 (Version None)
Quarter: 2011Q1

REPORT INFORMATION
  Report Type: 
  Country: None (occurrence: None)
  Receive Date: 20110329
  Receipt Date: 20101014
  Transmission Date: 20110831
  Serious: Yes (Other)
  Sender: FDA-Public Use
  Company Number: US-BAYER-201022222NA

PATIENT
  Sex: Female
  Weight: 61.224 kg

DRUGS (7)
  1. ANAPROX [Concomitant]
  2. YAZ [Suspect]
     Indication: CONTRACEPTION
     Route: 048
     Dates: start: 20070907
  3. GENITO URINARY SYSTEM AND SEX HORMONES [Concomitant]
  4. PHENTERMINE [Concomitant]
     Dosage: UNK
     Dates: start: 20070813
  5. ALLEGRA D 24 HOUR [Concomitant]
  6. NUVARING [Concomitant]
     Dosage: UNK
  7. PHENTERMINE [Concomitant]
     Dosage: UNK

REACTIONS (5)
  - HYPOAESTHESIA [None]
  - NEUROPATHY PERIPHERAL [None]
  - NERVE INJURY [None]
  - PERIPHERAL NERVE INJURY [None]
  - CEREBROVASCULAR ACCIDENT [None]
